FAERS Safety Report 5372729-2 (Version None)
Quarter: 2007Q2

REPORT INFORMATION
  Report Type: 
  Country: None (occurrence: None)
  Receive Date: 20070619
  Receipt Date: 20070316
  Transmission Date: 20071010
  Serious: Yes (Hospitalization)
  Sender: FDA-Public Use
  Company Number: WAES 0703USA03416

PATIENT
  Sex: Female

DRUGS (1)
  1. COZAAR [Suspect]
     Dosage: 100 MG/DAILY/PO
     Route: 048
     Dates: start: 20020101, end: 20061201

REACTIONS (1)
  - HOSPITALISATION [None]
